FAERS Safety Report 6864013-2 (Version None)
Quarter: 2010Q3

REPORT INFORMATION
  Report Type: 
  Country: None (occurrence: None)
  Receive Date: 20100721
  Receipt Date: 20080317
  Transmission Date: 20110219
  Serious: No
  Sender: FDA-Public Use
  Company Number: US-PFIZER INC-2008023598

PATIENT
  Sex: Female
  Weight: 67.6 kg

DRUGS (5)
  1. CHANTIX [Suspect]
     Indication: SMOKING CESSATION THERAPY
     Route: 048
     Dates: start: 20080101
  2. DRUG, UNSPECIFIED [Concomitant]
     Indication: HYPOTHYROIDISM
     Route: 048
  3. LEXAPRO [Concomitant]
     Route: 048
  4. CLONAZEPAM [Concomitant]
     Route: 048
  5. WELLBUTRIN [Concomitant]

REACTIONS (8)
  - ABNORMAL BEHAVIOUR [None]
  - ASTHMA [None]
  - BRONCHITIS [None]
  - DYSPNOEA [None]
  - EMPHYSEMA [None]
  - IRRITABILITY [None]
  - MOOD ALTERED [None]
  - UPPER RESPIRATORY TRACT INFECTION [None]
